FAERS Safety Report 7665688-0 (Version None)
Quarter: 2011Q3

REPORT INFORMATION
  Report Type: 
  Country: None (occurrence: None)
  Receive Date: 20110806
  Receipt Date: 20110415
  Transmission Date: 20111222
  Serious: No
  Sender: FDA-Public Use
  Company Number: US-ABBOTT-11P-163-0719451-00

PATIENT
  Sex: Female
  Weight: 68.1 kg

DRUGS (3)
  1. NIASPAN [Suspect]
     Indication: PRODUCT USED FOR UNKNOWN INDICATION
     Dosage: AFTER EVENING MEAL
     Route: 048
     Dates: start: 20110415
  2. AMOXICILLIN [Concomitant]
     Indication: LARYNGITIS
     Route: 048
  3. MOTRIN [Concomitant]
     Indication: LARYNGITIS
     Route: 048

REACTIONS (3)
  - FEELING HOT [None]
  - NAUSEA [None]
  - TREMOR [None]
